FAERS Safety Report 9758420 (Version 2)
Quarter: 2014Q1

REPORT INFORMATION
  Report Type: Spontaneous
  Country: IT (occurrence: IT)
  Receive Date: 20131216
  Receipt Date: 20140227
  Transmission Date: 20141002
  Serious: Yes (Hospitalization)
  Sender: FDA-Public Use
  Company Number: CHNY2013IT002835

PATIENT
  Age: 69 Year
  Sex: Male

DRUGS (7)
  1. IBUPROFEN [Suspect]
     Indication: POSTOPERATIVE ANALGESIA
     Dosage: 600 MG, QD
     Route: 048
  2. QUINAPRIL [Concomitant]
  3. ESCITALOPRAM OXALATE [Concomitant]
  4. ALPRAZOLAM [Concomitant]
  5. VENLAFAXINE [Concomitant]
  6. TAMSULOSIN HCL [Concomitant]
  7. NIFEDIPINE [Concomitant]

REACTIONS (1)
  - Pulmonary eosinophilia [Recovering/Resolving]
